FAERS Safety Report 7908785-4 (Version None)
Quarter: 2011Q4

REPORT INFORMATION
  Report Type: 
  Country: None (occurrence: None)
  Receive Date: 20111111
  Receipt Date: 20111108
  Transmission Date: 20120403
  Serious: Yes (Other)
  Sender: FDA-Public Use
  Company Number: US-PFIZER INC-2011132460

PATIENT
  Sex: Female

DRUGS (2)
  1. CHANTIX [Suspect]
     Indication: SMOKING CESSATION THERAPY
     Dosage: UNK
     Dates: start: 20080201, end: 20080301
  2. CHANTIX [Suspect]
     Dosage: UNK
     Dates: start: 20080701, end: 20080701

REACTIONS (7)
  - DEPRESSION [None]
  - ANXIETY [None]
  - SUICIDAL IDEATION [None]
  - INTENTIONAL OVERDOSE [None]
  - SUICIDE ATTEMPT [None]
  - LOSS OF CONSCIOUSNESS [None]
  - AGGRESSION [None]
